FAERS Safety Report 7164262-2 (Version None)
Quarter: 2010Q4

REPORT INFORMATION
  Report Type: 
  Country: None (occurrence: None)
  Receive Date: 20101215
  Receipt Date: 20101206
  Transmission Date: 20110411
  Serious: Yes (Other)
  Sender: FDA-Public Use
  Company Number: US-WATSON-2010-15826

PATIENT
  Age: 1 Week

DRUGS (1)
  1. DOXEPIN HCL [Suspect]
     Indication: ANTIDEPRESSANT THERAPY
     Dosage: UNK
     Route: 063

REACTIONS (5)
  - HYPOREFLEXIA [None]
  - HYPOTONIA [None]
  - POOR SUCKING REFLEX [None]
  - VOMITING [None]
  - WEIGHT DECREASED [None]
